FAERS Safety Report 5273648-2 (Version None)
Quarter: 2007Q1

REPORT INFORMATION
  Report Type: 
  Country: None (occurrence: None)
  Receive Date: 20070321
  Receipt Date: 20070321
  Transmission Date: 20070707
  Serious: Yes (Life-Threatening, Hospitalization)
  Sender: FDA-Public Use
  Company Number: None

PATIENT
  Age: 30 Year
  Sex: Female
  Weight: 78.0187 kg

DRUGS (1)
  1. QUASENSE [Suspect]
     Indication: CONTRACEPTION
     Dosage: 91-DAY REGIMEN ONCE DAILY PO
     Route: 048
     Dates: start: 20070222, end: 20070303

REACTIONS (6)
  - DEEP VEIN THROMBOSIS [None]
  - EYE DISORDER [None]
  - MIGRAINE [None]
  - PULMONARY EMBOLISM [None]
  - THROMBOSIS [None]
  - VISUAL DISTURBANCE [None]
